FAERS Safety Report 14491179 (Version 1)
Quarter: 2018Q1

REPORT INFORMATION
  Report Type: Spontaneous
  Country: US (occurrence: US)
  Receive Date: 20180206
  Receipt Date: 20180206
  Transmission Date: 20180509
  Serious: No
  Sender: FDA-Public Use
  Company Number: US-B.I. PHARMACEUTICALS,INC./RIDGEFIELD-2018-BI-005614

PATIENT
  Sex: Female

DRUGS (1)
  1. ATROVENT [Suspect]
     Active Substance: IPRATROPIUM BROMIDE
     Indication: PRODUCT USED FOR UNKNOWN INDICATION
     Dosage: FORM STRENGTH: 17 MCG; ? ADMINISTRATION CORRECT? NR ?ACTION(S) TAKEN WITH PRODUCT: NOT REPORTED
     Route: 055
     Dates: start: 201801

REACTIONS (8)
  - Feeling abnormal [Unknown]
  - Visual impairment [Unknown]
  - Discomfort [Unknown]
  - Pain [Unknown]
  - Dry mouth [Unknown]
  - Pain in extremity [Unknown]
  - Asthenia [Unknown]
  - Cardiac disorder [Unknown]
